FAERS Safety Report 6435521-3 (Version None)
Quarter: 2009Q4

REPORT INFORMATION
  Report Type: 
  Country: None (occurrence: None)
  Receive Date: 20091111
  Receipt Date: 20091103
  Transmission Date: 20100525
  Serious: Yes (Hospitalization)
  Sender: FDA-Public Use
  Company Number: US-BIOGENIDEC-2009BI016999

PATIENT
  Sex: Female

DRUGS (2)
  1. AVONEX [Suspect]
     Indication: MULTIPLE SCLEROSIS
     Route: 030
     Dates: start: 20010101, end: 20030101
  2. AVONEX [Suspect]
     Route: 030
     Dates: start: 20030101, end: 20090529

REACTIONS (7)
  - ABASIA [None]
  - COORDINATION ABNORMAL [None]
  - FALL [None]
  - HIP FRACTURE [None]
  - PARAPLEGIA [None]
  - POOR VENOUS ACCESS [None]
  - THROMBOSIS [None]
